FAERS Safety Report 11678424 (Version 2)
Quarter: 2015Q4

REPORT INFORMATION
  Report Type: Spontaneous
  Country: JP (occurrence: JP)
  Receive Date: 20151028
  Receipt Date: 20151214
  Transmission Date: 20160304
  Serious: Yes (Other)
  Sender: FDA-Public Use
  Company Number: JP-PFIZER INC-2015350278

PATIENT
  Age: 86 Year
  Sex: Male
  Weight: 52.3 kg

DRUGS (2)
  1. SUTENT [Suspect]
     Active Substance: SUNITINIB MALATE
     Indication: RENAL CELL CARCINOMA
     Dosage: 37.5 MG, CYCLIC (2-WEEK-ON AND 1-WEEK-OFF)
     Route: 048
     Dates: start: 20140709, end: 20140730
  2. ZOMETA [Concomitant]
     Active Substance: ZOLEDRONIC ACID
     Dosage: 4 MG, UNK
     Dates: start: 20140708, end: 20141027

REACTIONS (2)
  - Hepatic function abnormal [Unknown]
  - Bone marrow failure [Recovered/Resolved]

NARRATIVE: CASE EVENT DATE: 201407
